FAERS Safety Report 10527604 (Version 3)
Quarter: 2015Q2

REPORT INFORMATION
  Report Type: Spontaneous
  Country: US (occurrence: US)
  Receive Date: 20141020
  Receipt Date: 20150520
  Transmission Date: 20150821
  Serious: Yes (Hospitalization)
  Sender: FDA-Public Use
  Company Number: US-BAYER-2014-154354

PATIENT
  Age: 21 Year
  Sex: Female
  Weight: 49.89 kg

DRUGS (1)
  1. MIRENA [Suspect]
     Active Substance: LEVONORGESTREL
     Indication: CONTRACEPTION
     Dosage: 20 MCG/24HR, CONT
     Route: 015
     Dates: start: 20070524, end: 20080120

REACTIONS (9)
  - Vaginal haemorrhage [None]
  - Post procedural discomfort [None]
  - Injury [None]
  - Device dislocation [None]
  - Abdominal pain [None]
  - Tachycardia [None]
  - Medical device pain [None]
  - Device dislocation [None]
  - Off label use of device [None]

NARRATIVE: CASE EVENT DATE: 20070525
